FAERS Safety Report 12719245 (Version 1)
Quarter: 2016Q3

REPORT INFORMATION
  Report Type: Spontaneous
  Country: US (occurrence: US)
  Receive Date: 20160907
  Receipt Date: 20160907
  Transmission Date: 20161109
  Serious: Yes (Hospitalization)
  Sender: FDA-Public Use
  Company Number: US-ASTRAZENECA-2016SE94156

PATIENT
  Age: 25851 Day
  Sex: Male
  Weight: 72.6 kg

DRUGS (11)
  1. BRILINTA [Suspect]
     Active Substance: TICAGRELOR
     Indication: ACUTE CORONARY SYNDROME
     Route: 048
     Dates: start: 20150318
  2. ATORVASTATIN [Concomitant]
     Active Substance: ATORVASTATIN
     Indication: DIABETES MELLITUS
  3. BRILINTA [Suspect]
     Active Substance: TICAGRELOR
     Indication: STENT PLACEMENT
     Route: 048
     Dates: start: 20150318
  4. ASPIRIN. [Concomitant]
     Active Substance: ASPIRIN
     Indication: STENT PLACEMENT
     Dates: start: 20150318
  5. CARVEDILOL. [Concomitant]
     Active Substance: CARVEDILOL
     Indication: BLOOD PRESSURE MEASUREMENT
     Dates: start: 201601
  6. OXYGEN. [Concomitant]
     Active Substance: OXYGEN
  7. ASPIRIN. [Concomitant]
     Active Substance: ASPIRIN
     Indication: ACUTE CORONARY SYNDROME
     Dates: start: 20150318
  8. ISOSORBIDE MONONITRATE. [Concomitant]
     Active Substance: ISOSORBIDE MONONITRATE
     Indication: HYPERTENSION
     Dates: start: 201601
  9. ATORVASTATIN [Concomitant]
     Active Substance: ATORVASTATIN
     Indication: BLOOD CHOLESTEROL
  10. CLORTHALIDON [Concomitant]
     Indication: JOINT SWELLING
     Dates: start: 2016
  11. GLYBURIDE. [Concomitant]
     Active Substance: GLYBURIDE
     Indication: DIABETES MELLITUS

REACTIONS (15)
  - Chest pain [Unknown]
  - Dizziness [Unknown]
  - Rotator cuff syndrome [Unknown]
  - Musculoskeletal pain [Unknown]
  - Hypoaesthesia [Unknown]
  - Chills [Unknown]
  - Malaise [Unknown]
  - Blood cholesterol decreased [Unknown]
  - Dyspnoea exertional [Unknown]
  - Blood pressure fluctuation [Unknown]
  - Intentional product misuse [Unknown]
  - Nausea [Unknown]
  - Dyspnoea [Unknown]
  - Fatigue [Unknown]
  - Oedema peripheral [Unknown]

NARRATIVE: CASE EVENT DATE: 20160817
